FAERS Safety Report 13695796 (Version 1)
Quarter: 2017Q2

REPORT INFORMATION
  Report Type: Report from Study
  Country: IT (occurrence: IT)
  Receive Date: 20170627
  Receipt Date: 20170627
  Transmission Date: 20170830
  Serious: Yes (Hospitalization, Other)
  Sender: FDA-Public Use
  Company Number: IT-MYLANLABS-2017M1037508

PATIENT

DRUGS (3)
  1. KETOROLAC [Suspect]
     Active Substance: KETOROLAC\KETOROLAC TROMETHAMINE
     Indication: PRODUCT USED FOR UNKNOWN INDICATION
     Route: 042
  2. CEFTRIAXONE. [Concomitant]
     Active Substance: CEFTRIAXONE
     Indication: PRODUCT USED FOR UNKNOWN INDICATION
     Dosage: 75MG
     Route: 042
  3. NIMESULIDE [Interacting]
     Active Substance: NIMESULIDE
     Indication: PRODUCT USED FOR UNKNOWN INDICATION
     Dosage: 100MG
     Route: 048

REACTIONS (4)
  - Drug interaction [Recovering/Resolving]
  - Rectal haemorrhage [Recovering/Resolving]
  - Melaena [Recovering/Resolving]
  - Incorrect drug administration duration [Recovering/Resolving]
